FAERS Safety Report 9143904 (Version 1)
Quarter: 2013Q1

REPORT INFORMATION
  Report Type: Spontaneous
  Country: US (occurrence: US)
  Receive Date: 20130306
  Receipt Date: 20130306
  Transmission Date: 20140127
  Serious: Yes (Hospitalization, Other)
  Sender: FDA-Public Use
  Company Number: US-JNJFOC-20130216127

PATIENT
  Sex: Female
  Weight: 63.5 kg

DRUGS (2)
  1. TOPAMAX [Suspect]
     Indication: MIGRAINE PROPHYLAXIS
     Route: 048
  2. FIORINAL NOS [Concomitant]
     Indication: MIGRAINE
     Dosage: 50/325/40MG/TABLET/DAILY/ORAL
     Route: 048

REACTIONS (2)
  - Nephrolithiasis [Recovered/Resolved]
  - Sepsis [Unknown]
